FAERS Safety Report 17111858 (Version 1)
Quarter: 2019Q4

REPORT INFORMATION
  Report Type: Spontaneous
  Country: US (occurrence: US)
  Receive Date: 20191111
  Receipt Date: 20191111
  Transmission Date: 20200122
  Serious: Yes (Hospitalization)
  Sender: FDA-Public Use
  Company Number: None

PATIENT
  Age: 65 Year
  Sex: Female

DRUGS (8)
  1. BETHKIS [Concomitant]
     Active Substance: TOBRAMYCIN
  2. CEPHALEXIN. [Concomitant]
     Active Substance: CEPHALEXIN
  3. COLISTIMETHATE [Concomitant]
     Active Substance: COLISTIMETHATE SODIUM
  4. PULMOZYME [Suspect]
     Active Substance: DORNASE ALFA
     Indication: CYSTIC FIBROSIS
     Dosage: ?          OTHER DOSE:1 VIAL;?
     Route: 055
     Dates: start: 20141016
  5. CAYSTON [Concomitant]
     Active Substance: AZTREONAM
  6. SOD CHL [Concomitant]
     Active Substance: SODIUM CHLORIDE
  7. ACETYLCYST [Concomitant]
  8. LEVALBUTEROL NEB SLN [Concomitant]

REACTIONS (1)
  - Pneumonia [None]

NARRATIVE: CASE EVENT DATE: 20191103
